FAERS Safety Report 9325272 (Version 9)
Quarter: 2016Q1

REPORT INFORMATION
  Report Type: Report from Study
  Country: CA (occurrence: CA)
  Receive Date: 20130604
  Receipt Date: 20160222
  Transmission Date: 20160526
  Serious: Yes (Other)
  Sender: FDA-Public Use
  Company Number: CA-ROCHE-1229027

PATIENT
  Age: 61 Year
  Sex: Female
  Weight: 82 kg

DRUGS (24)
  1. COUMADIN [Concomitant]
     Active Substance: WARFARIN SODIUM
  2. PREDNISONE. [Concomitant]
     Active Substance: PREDNISONE
     Route: 065
  3. ARAVA [Concomitant]
     Active Substance: LEFLUNOMIDE
     Route: 065
  4. CIPRALEX [Concomitant]
     Active Substance: ESCITALOPRAM OXALATE
     Route: 065
  5. NEXIUM [Concomitant]
     Active Substance: ESOMEPRAZOLE MAGNESIUM
     Route: 065
  6. SPIRIVA [Concomitant]
     Active Substance: TIOTROPIUM BROMIDE MONOHYDRATE
     Route: 065
  7. RITUXAN [Suspect]
     Active Substance: RITUXIMAB
     Indication: RHEUMATOID ARTHRITIS
     Dosage: DATE OF LAST INFUSION: 23/JAN/2014
     Route: 042
     Dates: start: 20130514
  8. WARFARIN [Concomitant]
     Active Substance: WARFARIN
     Dosage: 2MG/3MG
     Route: 065
  9. METHYLPREDNISOLONE. [Concomitant]
     Active Substance: METHYLPREDNISOLONE
     Indication: PREMEDICATION
     Route: 042
     Dates: start: 20130514
  10. NITRO PATCH [Concomitant]
     Active Substance: NITROGLYCERIN
     Route: 065
  11. CODEINE [Concomitant]
     Active Substance: CODEINE
     Route: 065
  12. AMLODIPINE [Concomitant]
     Active Substance: AMLODIPINE BESYLATE
     Route: 065
  13. ACETAMINOPHEN. [Concomitant]
     Active Substance: ACETAMINOPHEN
     Indication: PREMEDICATION
     Route: 048
     Dates: start: 20130514
  14. LORAZEPAM. [Concomitant]
     Active Substance: LORAZEPAM
     Route: 065
  15. RAMIPRIL. [Concomitant]
     Active Substance: RAMIPRIL
     Route: 065
  16. LASIX [Concomitant]
     Active Substance: FUROSEMIDE
     Route: 065
  17. TYLENOL WITH CODEINE [Concomitant]
     Active Substance: ACETAMINOPHEN\CODEINE PHOSPHATE
     Route: 065
  18. ADVAIR HFA [Concomitant]
     Active Substance: FLUTICASONE PROPIONATE\SALMETEROL XINAFOATE
     Route: 065
  19. OXYGEN. [Concomitant]
     Active Substance: OXYGEN
  20. CLONAZEPAM. [Concomitant]
     Active Substance: CLONAZEPAM
     Route: 065
  21. VENTOLIN [Concomitant]
     Active Substance: ALBUTEROL SULFATE
     Route: 065
  22. AMLODIPINE [Concomitant]
     Active Substance: AMLODIPINE BESYLATE
     Route: 065
  23. DIPHENHYDRAMINE HCL [Concomitant]
     Active Substance: DIPHENHYDRAMINE HYDROCHLORIDE
     Indication: PREMEDICATION
     Route: 048
     Dates: start: 20130514
  24. ZOPLICONE [Concomitant]
     Active Substance: ZOPICLONE
     Route: 065

REACTIONS (27)
  - Renal cancer [Unknown]
  - Hepatitis [Not Recovered/Not Resolved]
  - Weight decreased [Not Recovered/Not Resolved]
  - Hypotension [Not Recovered/Not Resolved]
  - Arthralgia [Unknown]
  - Blood immunoglobulin G decreased [Unknown]
  - Blood pressure diastolic abnormal [Unknown]
  - Abdominal discomfort [Unknown]
  - Localised infection [Recovered/Resolved]
  - Joint swelling [Not Recovered/Not Resolved]
  - Rheumatoid arthritis [Not Recovered/Not Resolved]
  - Nausea [Unknown]
  - Pain [Unknown]
  - C-reactive protein increased [Unknown]
  - Malaise [Unknown]
  - Arthropathy [Unknown]
  - Diarrhoea [Recovering/Resolving]
  - Asthenia [Not Recovered/Not Resolved]
  - Musculoskeletal discomfort [Unknown]
  - Fatigue [Unknown]
  - International normalised ratio increased [Recovered/Resolved]
  - Benign breast neoplasm [Not Recovered/Not Resolved]
  - Benign neoplasm of thyroid gland [Not Recovered/Not Resolved]
  - Limb deformity [Unknown]
  - Cellulitis [Unknown]
  - Grip strength decreased [Not Recovered/Not Resolved]
  - Musculoskeletal stiffness [Unknown]

NARRATIVE: CASE EVENT DATE: 20130515
